FAERS Safety Report 4425614-4 (Version None)
Quarter: 2004Q3

REPORT INFORMATION
  Report Type: 
  Country: None (occurrence: None)
  Receive Date: 20040809
  Receipt Date: 20040730
  Transmission Date: 20050211
  Serious: Yes (Hospitalization, Other)
  Sender: FDA-Public Use
  Company Number: 163-20785-04050275

PATIENT
  Age: 78 Year
  Sex: Male

DRUGS (3)
  1. THALOMID [Suspect]
     Indication: MULTIPLE MYELOMA
     Dosage: 150 MG, DAILY, ORAL
     Route: 048
     Dates: start: 20040206, end: 20040404
  2. DECADRON [Suspect]
     Indication: MULTIPLE MYELOMA
     Dates: end: 20040423
  3. ANTICOAGULATION [Concomitant]

REACTIONS (23)
  - ACCIDENTAL OVERDOSE [None]
  - ALVEOLITIS [None]
  - ANOREXIA [None]
  - BLOOD ALBUMIN DECREASED [None]
  - BLOOD CALCIUM DECREASED [None]
  - BRAIN NATRIURETIC PEPTIDE INCREASED [None]
  - BRONCHIECTASIS [None]
  - CARDIAC FAILURE CONGESTIVE [None]
  - CYANOSIS [None]
  - DIZZINESS [None]
  - FATIGUE [None]
  - FLUID OVERLOAD [None]
  - HAEMOGLOBIN DECREASED [None]
  - HYPOTENSION [None]
  - LYMPHOCYTE PERCENTAGE DECREASED [None]
  - MARKEDLY REDUCED DIETARY INTAKE [None]
  - MONOCLONAL IMMUNOGLOBULIN PRESENT [None]
  - NAUSEA [None]
  - PLASMA VISCOSITY DECREASED [None]
  - PNEUMONIA [None]
  - PNEUMONIA ASPIRATION [None]
  - RED BLOOD CELL SEDIMENTATION RATE INCREASED [None]
  - RESPIRATORY FAILURE [None]
